FAERS Safety Report 25151498 (Version 1)
Quarter: 2025Q2

REPORT INFORMATION
  Report Type: Report from Study
  Country: US (occurrence: US)
  Receive Date: 20250402
  Receipt Date: 20250402
  Transmission Date: 20250716
  Serious: Yes (Other)
  Sender: ABBVIE
  Company Number: US-ABBVIE-6201306

PATIENT
  Sex: Female

DRUGS (1)
  1. HUMIRA [Suspect]
     Active Substance: ADALIMUMAB
     Indication: Colitis ulcerative
     Route: 058
     Dates: start: 202406

REACTIONS (4)
  - Systemic lupus erythematosus [Recovered/Resolved]
  - Dermatitis [Recovered/Resolved]
  - Fatigue [Recovered/Resolved]
  - Butterfly rash [Recovered/Resolved]
